FAERS Safety Report 5902695-X (Version None)
Quarter: 2008Q3

REPORT INFORMATION
  Report Type: 
  Country: None (occurrence: None)
  Receive Date: 20080930
  Receipt Date: 20080918
  Transmission Date: 20090109
  Serious: Yes (Other)
  Sender: FDA-Public Use
  Company Number: BR-RANBAXY-2008R5-18103

PATIENT

DRUGS (3)
  1. CEFUROXIME AXETIL [Suspect]
     Indication: EAR INFECTION
     Dosage: 250 MG/5ML, QID
     Route: 048
     Dates: start: 20080916
  2. CEFUROXIME AXETIL [Suspect]
     Indication: PHARYNGITIS
  3. PREDNISOLONE [Concomitant]
     Indication: DRUG USE FOR UNKNOWN INDICATION
     Dosage: UNK MG

REACTIONS (3)
  - ERYTHEMA [None]
  - SKIN DISORDER [None]
  - SWELLING FACE [None]
